FAERS Safety Report 14901674 (Version 1)
Quarter: 2018Q2

REPORT INFORMATION
  Report Type: Spontaneous
  Country: US (occurrence: US)
  Receive Date: 20180516
  Receipt Date: 20180516
  Transmission Date: 20180711
  Serious: Yes (Other)
  Sender: FDA-Public Use
  Company Number: US-MYLANLABS-2018M1032094

PATIENT
  Age: 61 Year
  Sex: Female

DRUGS (4)
  1. ESTROGEL [Suspect]
     Active Substance: ESTRADIOL
     Indication: SLEEP DISORDER
  2. ADVIL (MEFENAMIC ACID) [Concomitant]
     Active Substance: MEFENAMIC ACID
     Indication: PRODUCT USED FOR UNKNOWN INDICATION
  3. ESTROGEL [Suspect]
     Active Substance: ESTRADIOL
     Indication: NIGHT SWEATS
     Dosage: UNK
     Dates: start: 20170516, end: 20180215
  4. ESTROGEL [Suspect]
     Active Substance: ESTRADIOL
     Indication: AFFECTIVE DISORDER

REACTIONS (7)
  - Visual impairment [Recovering/Resolving]
  - Dizziness [Unknown]
  - Hypoaesthesia [Unknown]
  - Pain [Unknown]
  - Fall [Unknown]
  - Migraine [Not Recovered/Not Resolved]
  - Confusional state [Unknown]

NARRATIVE: CASE EVENT DATE: 201710
